FAERS Safety Report 5616031-X (Version None)
Quarter: 2008Q1

REPORT INFORMATION
  Report Type: 
  Country: None (occurrence: None)
  Receive Date: 20080206
  Receipt Date: 20080128
  Transmission Date: 20080703
  Serious: Yes (Other)
  Sender: FDA-Public Use
  Company Number: US-PFIZER INC-2007075468

PATIENT
  Sex: Male
  Weight: 91 kg

DRUGS (2)
  1. CELEBREX [Suspect]
     Indication: ARTHRITIS
  2. ALL OTHER THERAPEUTIC PRODUCTS [Concomitant]

REACTIONS (4)
  - ANGIOEDEMA [None]
  - LARYNGEAL OEDEMA [None]
  - PALPITATIONS [None]
  - TYPE II HYPERSENSITIVITY [None]
